FAERS Safety Report 15253844 (Version 3)
Quarter: 2019Q4

REPORT INFORMATION
  Report Type: Report from Study
  Country: US (occurrence: US)
  Receive Date: 20180808
  Receipt Date: 20191203
  Transmission Date: 20200122
  Serious: Yes (Hospitalization, Other)
  Sender: FDA-Public Use
  Company Number: US-ROCHE-2163870

PATIENT
  Sex: Male
  Weight: 181.6 kg

DRUGS (10)
  1. VITAMIN C [Concomitant]
     Active Substance: ASCORBIC ACID
     Indication: URINARY TRACT INFECTION
     Route: 048
     Dates: start: 201906
  2. AMPYRA [Concomitant]
     Active Substance: DALFAMPRIDINE
     Route: 048
     Dates: start: 201101
  3. FISH OIL [Concomitant]
     Active Substance: FISH OIL
     Route: 048
     Dates: start: 2014
  4. OCREVUS [Suspect]
     Active Substance: OCRELIZUMAB
     Dosage: ONGOING : UNKNOWN
     Route: 042
     Dates: start: 2017
  5. TROSPIUM [Concomitant]
     Active Substance: TROSPIUM
     Indication: URINARY INCONTINENCE
     Dosage: ONGOING : YES
     Route: 048
     Dates: start: 201109
  6. COQ 10 [Concomitant]
     Active Substance: UBIDECARENONE
     Dosage: ONGOING : YES
     Route: 048
  7. CRANBERRY [VACCINIUM SPP.] [Concomitant]
     Indication: URINARY TRACT INFECTION
     Dosage: ONGOING : YES
     Route: 048
  8. BACLOFEN. [Concomitant]
     Active Substance: BACLOFEN
     Dosage: ONGOING : YES
     Route: 048
     Dates: start: 201701
  9. LISINOPRIL. [Concomitant]
     Active Substance: LISINOPRIL
     Indication: HYPERTENSION
     Dosage: ONGOING : YES
     Route: 048
     Dates: start: 201701
  10. OCREVUS [Suspect]
     Active Substance: OCRELIZUMAB
     Indication: RELAPSING MULTIPLE SCLEROSIS
     Dosage: ONGOING: NO
     Route: 042
     Dates: start: 201709

REACTIONS (4)
  - Asthenia [Recovered/Resolved]
  - Nephrolithiasis [Not Recovered/Not Resolved]
  - Urinary tract infection [Recovered/Resolved]
  - Chromaturia [Recovered/Resolved]

NARRATIVE: CASE EVENT DATE: 2017
